FAERS Safety Report 18359772 (Version 2)
Quarter: 2020Q4

REPORT INFORMATION
  Report Type: Spontaneous
  Country: JP (occurrence: JP)
  Receive Date: 20201008
  Receipt Date: 20201012
  Transmission Date: 20210114
  Serious: Yes (Hospitalization, Other)
  Sender: FDA-Public Use
  Company Number: JP-GLAXOSMITHKLINE-JP2020198842

PATIENT
  Age: 77 Year
  Sex: Male

DRUGS (5)
  1. DILTIAZEM HYDROCHLORIDE R CAPSULES [Concomitant]
     Dosage: UNK
  2. AVOLVE [Suspect]
     Active Substance: DUTASTERIDE
     Indication: BENIGN PROSTATIC HYPERPLASIA
     Dosage: 1 DF, QD
     Route: 048
  3. LOSARTAN POTASSIUM. [Concomitant]
     Active Substance: LOSARTAN POTASSIUM
     Dosage: UNK
  4. DIART [Concomitant]
     Active Substance: AZOSEMIDE
     Dosage: UNK
  5. URIEF [Concomitant]
     Active Substance: SILODOSIN
     Indication: BENIGN PROSTATIC HYPERPLASIA
     Dosage: UNK

REACTIONS (3)
  - Wound [Unknown]
  - Acquired hydrocele [Unknown]
  - Sinus node dysfunction [Unknown]
